FAERS Safety Report 4514728-6 (Version None)
Quarter: 2004Q4

REPORT INFORMATION
  Report Type: 
  Country: None (occurrence: None)
  Receive Date: 20041124
  Receipt Date: 20041124
  Transmission Date: 20050328
  Serious: Yes (Hospitalization)
  Sender: FDA-Public Use
  Company Number: None

PATIENT
  Age: 80 Year
  Sex: Male
  Weight: 74.45 kg

DRUGS (1)
  1. MS CONTIN [Suspect]
     Dosage: 5MG   1 DOSE  ORAL
     Route: 048
     Dates: start: 20040707, end: 20040707

REACTIONS (1)
  - DEPRESSED LEVEL OF CONSCIOUSNESS [None]
